FAERS Safety Report 7600565-2 (Version None)
Quarter: 2011Q2

REPORT INFORMATION
  Report Type: 
  Country: None (occurrence: None)
  Receive Date: 20110627
  Receipt Date: 20101007
  Transmission Date: 20111010
  Serious: Yes (Other)
  Sender: FDA-Public Use
  Company Number: VISP-PR-1010S-0471

PATIENT
  Age: 76 Year
  Sex: Female

DRUGS (1)
  1. VISIPAQUE [Suspect]
     Indication: FISTULA
     Dosage: 8 ML, SINGLE DOSE, FISTULA
     Dates: start: 20101007, end: 20101007

REACTIONS (3)
  - DYSPNOEA [None]
  - ANAPHYLACTOID REACTION [None]
  - WHEEZING [None]
